FAERS Safety Report 8135761-1 (Version None)
Quarter: 2012Q1

REPORT INFORMATION
  Report Type: 
  Country: None (occurrence: None)
  Receive Date: 20120103
  Receipt Date: 20111103
  Transmission Date: 20120608
  Serious: No
  Sender: FDA-Public Use
  Company Number: AE-2011-003050

PATIENT
  Age: 62 Year
  Sex: Female
  Weight: 100.6985 kg

DRUGS (11)
  1. RIBAVIRIN [Concomitant]
  2. NAPROSYN [Concomitant]
  3. ASPIRIN [Concomitant]
  4. LABETALOL HCL [Concomitant]
  5. PEGASYS [Concomitant]
  6. RANITIDINE [Concomitant]
  7. INCIVEK [Suspect]
     Dosage: 2250 MG (750 MG, 3 IN 1 D), ORAL
     Route: 048
     Dates: start: 20110921
  8. LISINOPRIL [Concomitant]
  9. HYDROCHLOROTHIAZIDE [Concomitant]
  10. NOVOLOG 70/30/10 (NOVOLOG MIX) [Concomitant]
  11. AMLODIPINE [Concomitant]

REACTIONS (7)
  - ASTHENIA [None]
  - NAUSEA [None]
  - DRY SKIN [None]
  - PRESYNCOPE [None]
  - LOSS OF CONSCIOUSNESS [None]
  - BLOOD GLUCOSE FLUCTUATION [None]
  - DIZZINESS [None]
